FAERS Safety Report 9494862 (Version 1)
Quarter: 2013Q3

REPORT INFORMATION
  Report Type: Spontaneous
  Country: GB (occurrence: GB)
  Receive Date: 20130903
  Receipt Date: 20130903
  Transmission Date: 20140515
  Serious: Yes (Other)
  Sender: FDA-Public Use
  Company Number: GB-JNJFOC-20130812537

PATIENT
  Sex: 0

DRUGS (4)
  1. PARACETAMOL [Suspect]
     Route: 048
  2. PARACETAMOL [Suspect]
     Indication: SUICIDE ATTEMPT
     Route: 048
  3. ANTIHISTAMINES [Suspect]
     Indication: SUICIDE ATTEMPT
     Route: 065
  4. NUROFEN [Suspect]
     Indication: SUICIDE ATTEMPT
     Route: 048

REACTIONS (12)
  - Haemoptysis [Unknown]
  - Suicide attempt [Recovered/Resolved]
  - Vision blurred [Unknown]
  - Dizziness [Unknown]
  - Fall [Unknown]
  - Photopsia [Unknown]
  - Headache [Unknown]
  - Memory impairment [Unknown]
  - Intentional overdose [Unknown]
  - Nausea [Not Recovered/Not Resolved]
  - Abdominal pain upper [Unknown]
  - Unevaluable event [Unknown]
